FAERS Safety Report 7960521-1 (Version None)
Quarter: 2011Q4

REPORT INFORMATION
  Report Type: 
  Country: None (occurrence: None)
  Receive Date: 20111206
  Receipt Date: 20111202
  Transmission Date: 20120403
  Serious: Yes (Other)
  Sender: FDA-Public Use
  Company Number: US-AMGEN-USASP2011064473

PATIENT
  Age: 22 Year
  Sex: Female

DRUGS (1)
  1. NPLATE [Suspect]
     Indication: IDIOPATHIC THROMBOCYTOPENIC PURPURA
     Dosage: 0.45 MUG/KG, UNK
     Dates: start: 20090327, end: 20090529

REACTIONS (2)
  - PLATELET COUNT DECREASED [None]
  - NASOPHARYNGITIS [None]
